FAERS Safety Report 7359662-1 (Version None)
Quarter: 2011Q1

REPORT INFORMATION
  Report Type: 
  Country: None (occurrence: None)
  Receive Date: 20110317
  Receipt Date: 20100507
  Transmission Date: 20110831
  Serious: No
  Sender: FDA-Public Use
  Company Number: US-PFIZER INC-2010058446

PATIENT
  Age: 78 Year
  Sex: Female

DRUGS (5)
  1. LEVOTHYROXINE [Suspect]
     Dosage: UNK
     Route: 065
  2. CRESTOR [Suspect]
     Indication: BLOOD CHOLESTEROL ABNORMAL
     Dosage: UNK
     Route: 065
  3. PLAVIX [Suspect]
     Indication: VASCULAR GRAFT
     Dosage: 75 MG, DAILY
     Route: 048
     Dates: start: 20050101
  4. THYROID TAB [Suspect]
     Indication: THYROID DISORDER
     Dosage: UNK
     Route: 065
  5. NORVASC [Suspect]
     Indication: BLOOD PRESSURE ABNORMAL
     Dosage: UNK

REACTIONS (6)
  - MALAISE [None]
  - ABDOMINAL PAIN [None]
  - GAIT DISTURBANCE [None]
  - FEELING ABNORMAL [None]
  - BURNING SENSATION [None]
  - BACK PAIN [None]
